FAERS Safety Report 18466466 (Version 12)
Quarter: 2021Q4

REPORT INFORMATION
  Report Type: Report from Study
  Country: CN (occurrence: CN)
  Receive Date: 20201104
  Receipt Date: 20211025
  Transmission Date: 20220304
  Serious: Yes (Hospitalization)
  Sender: FDA-Public Use
  Company Number: CN-ROCHE-2703472

PATIENT
  Age: 64 Year
  Sex: Male
  Weight: 84.5 kg

DRUGS (95)
  1. POLATUZUMAB VEDOTIN [Suspect]
     Active Substance: POLATUZUMAB VEDOTIN
     Indication: Diffuse large B-cell lymphoma
     Dosage: DATE OF MOST RECENT DOSE (152.1 MG) OF POLATUZUMAB VEDOTIN PRIOR TO SAE ONSET 23 OCT 2020
     Route: 042
     Dates: start: 20201023
  2. PLACEBO [Suspect]
     Active Substance: UNSPECIFIED INGREDIENT
     Indication: Diffuse large B-cell lymphoma
     Dosage: DATE OF MOST RECENT DOSE OF PLACEBO PRIOR TO SAE ONSET 23/OCT/2020.
     Route: 042
     Dates: start: 20201023
  3. RITUXIMAB [Suspect]
     Active Substance: RITUXIMAB
     Indication: Diffuse large B-cell lymphoma
     Dosage: DATE OF MOST RECENT DOSE OF RITUXIMAB PRIOR TO SAE ONSET: 22/OCT/2020?LAST DOSE OF RITUXIMAB 757.5 M
     Route: 042
     Dates: start: 20201022
  4. DOXORUBICIN [Suspect]
     Active Substance: DOXORUBICIN
     Indication: Diffuse large B-cell lymphoma
     Dosage: DATE OF MOST RECENT DOSE OF DOXORUBICIN PRIOR TO SAE ONSET 23/OCT/2020?LAST DOSE OF DOXORUBICIN 101
     Route: 042
     Dates: start: 20201023
  5. CYCLOPHOSPHAMIDE [Suspect]
     Active Substance: CYCLOPHOSPHAMIDE
     Indication: Diffuse large B-cell lymphoma
     Dosage: DATE OF MOST RECENT DOSE OF CYCLOPHOSPHAMIDE PRIOR TO SAE ONSET 23/OCT/2020?DOSE OF LAST CYCLOPHOSPH
     Route: 042
     Dates: start: 20201023
  6. PREDNISONE [Suspect]
     Active Substance: PREDNISONE
     Indication: Diffuse large B-cell lymphoma
     Dosage: ON DAYS 1-5 OF EVERY 21-DAY CYCLE FOR 6 CYCLES?DATE OF MOST RECENT DOSE OF PREDNISONE 25/OCT/2020?DO
     Route: 048
     Dates: start: 20201022
  7. COMPOUND CHLORHEXIDINE GARGLE [Concomitant]
     Dosage: LIQUID
     Route: 048
     Dates: start: 20201022
  8. POVIDONE-IODINE [Concomitant]
     Active Substance: POVIDONE-IODINE
     Dosage: DISINFECTANT
     Route: 067
     Dates: start: 20201022
  9. PANTOPRAZOLE [Concomitant]
     Active Substance: PANTOPRAZOLE
     Route: 042
     Dates: start: 20201022, end: 20201027
  10. PANTOPRAZOLE [Concomitant]
     Active Substance: PANTOPRAZOLE
     Route: 042
     Dates: start: 20201114, end: 20201116
  11. PANTOPRAZOLE [Concomitant]
     Active Substance: PANTOPRAZOLE
     Route: 042
     Dates: start: 20201203, end: 20201207
  12. SODIUM BICARBONATE [Concomitant]
     Active Substance: SODIUM BICARBONATE
     Route: 042
     Dates: start: 20201021, end: 20201025
  13. SODIUM BICARBONATE [Concomitant]
     Active Substance: SODIUM BICARBONATE
     Route: 042
     Dates: start: 20201114, end: 20201116
  14. SODIUM BICARBONATE [Concomitant]
     Active Substance: SODIUM BICARBONATE
     Route: 042
     Dates: start: 20201203, end: 20201206
  15. SODIUM BICARBONATE [Concomitant]
     Active Substance: SODIUM BICARBONATE
     Route: 042
     Dates: start: 20201225, end: 20201227
  16. SODIUM BICARBONATE [Concomitant]
     Active Substance: SODIUM BICARBONATE
     Route: 042
     Dates: start: 20210114, end: 20210116
  17. SODIUM BICARBONATE [Concomitant]
     Active Substance: SODIUM BICARBONATE
     Route: 042
     Dates: start: 20210205, end: 20210206
  18. DIISOPROPYLAMINE DICHLOROACETATE [Concomitant]
     Route: 042
     Dates: start: 20201022, end: 20201025
  19. DIISOPROPYLAMINE DICHLOROACETATE [Concomitant]
     Route: 042
     Dates: start: 20201114, end: 20201116
  20. DIISOPROPYLAMINE DICHLOROACETATE [Concomitant]
     Route: 042
     Dates: start: 20201203, end: 20201206
  21. DIISOPROPYLAMINE DICHLOROACETATE [Concomitant]
     Route: 042
     Dates: start: 20201226, end: 20201227
  22. DIISOPROPYLAMINE DICHLOROACETATE [Concomitant]
     Route: 042
     Dates: start: 20210114, end: 20210116
  23. DIISOPROPYLAMINE DICHLOROACETATE [Concomitant]
     Route: 042
     Dates: start: 20210205, end: 20210206
  24. POTASSIUM CITRATE [Concomitant]
     Active Substance: POTASSIUM CITRATE
     Dosage: DOSE: 1 OTHER
     Route: 048
     Dates: start: 20201022, end: 20201027
  25. POTASSIUM CITRATE [Concomitant]
     Active Substance: POTASSIUM CITRATE
     Dosage: DOSE: 1 OTHER
     Route: 048
     Dates: start: 20201114, end: 20201116
  26. POTASSIUM CITRATE [Concomitant]
     Active Substance: POTASSIUM CITRATE
     Dosage: DOSE: 1 OTHER
     Route: 048
     Dates: start: 20201203, end: 20201207
  27. POTASSIUM CITRATE [Concomitant]
     Active Substance: POTASSIUM CITRATE
     Dosage: DOSE: 1 OTHER
     Route: 048
     Dates: start: 20201226, end: 20201228
  28. POTASSIUM CITRATE [Concomitant]
     Active Substance: POTASSIUM CITRATE
     Dosage: DOSE: 1 OTHER
     Route: 048
     Dates: start: 20210114, end: 20210118
  29. POTASSIUM CITRATE [Concomitant]
     Active Substance: POTASSIUM CITRATE
     Dosage: DOSE: 1 OTHER
     Route: 048
     Dates: start: 20210205, end: 20210207
  30. TRIMETAZIDINE DIHYDROCHLORIDE [Concomitant]
     Active Substance: TRIMETAZIDINE DIHYDROCHLORIDE
     Route: 048
     Dates: start: 20201022, end: 20201027
  31. TRIMETAZIDINE DIHYDROCHLORIDE [Concomitant]
     Active Substance: TRIMETAZIDINE DIHYDROCHLORIDE
     Route: 048
     Dates: start: 20201114, end: 20201116
  32. TRIMETAZIDINE DIHYDROCHLORIDE [Concomitant]
     Active Substance: TRIMETAZIDINE DIHYDROCHLORIDE
     Route: 048
     Dates: start: 20201203, end: 20201207
  33. TRIMETAZIDINE DIHYDROCHLORIDE [Concomitant]
     Active Substance: TRIMETAZIDINE DIHYDROCHLORIDE
     Route: 048
     Dates: start: 20201226, end: 20201228
  34. TRIMETAZIDINE DIHYDROCHLORIDE [Concomitant]
     Active Substance: TRIMETAZIDINE DIHYDROCHLORIDE
     Route: 048
     Dates: start: 20210114, end: 20210118
  35. TRIMETAZIDINE DIHYDROCHLORIDE [Concomitant]
     Active Substance: TRIMETAZIDINE DIHYDROCHLORIDE
     Route: 048
     Dates: start: 20210205, end: 20210207
  36. AMLODIPINE BESYLATE [Concomitant]
     Active Substance: AMLODIPINE BESYLATE
     Route: 058
     Dates: start: 20201026, end: 20201026
  37. AMLODIPINE BESYLATE [Concomitant]
     Active Substance: AMLODIPINE BESYLATE
     Route: 058
     Dates: start: 20201116, end: 20201116
  38. LOSARTAN POTASSIUM AND HYDROCHLOROTHIAZIDE [Concomitant]
     Active Substance: HYDROCHLOROTHIAZIDE\LOSARTAN POTASSIUM
     Route: 048
     Dates: start: 2018
  39. NIFEDIPINE [Concomitant]
     Active Substance: NIFEDIPINE
     Dosage: CONTROLLED RELEASE
     Route: 048
     Dates: start: 20201027
  40. METOPROLOL [Concomitant]
     Active Substance: METOPROLOL
     Route: 048
     Dates: start: 20201027
  41. ONDANSETRON [Concomitant]
     Active Substance: ONDANSETRON
     Route: 042
     Dates: start: 20201023, end: 20201023
  42. ONDANSETRON [Concomitant]
     Active Substance: ONDANSETRON
     Route: 042
     Dates: start: 20201114, end: 20201114
  43. ONDANSETRON [Concomitant]
     Active Substance: ONDANSETRON
     Route: 042
     Dates: start: 20201204, end: 20201204
  44. ONDANSETRON [Concomitant]
     Active Substance: ONDANSETRON
     Route: 042
     Dates: start: 20201226, end: 20201226
  45. ONDANSETRON [Concomitant]
     Active Substance: ONDANSETRON
     Route: 042
     Dates: start: 20210115, end: 20210115
  46. ONDANSETRON [Concomitant]
     Active Substance: ONDANSETRON
     Route: 042
     Dates: start: 20210205, end: 20210205
  47. DEXRAZOXANE [Concomitant]
     Active Substance: DEXRAZOXANE
     Route: 042
     Dates: start: 20201023, end: 20201023
  48. DEXRAZOXANE [Concomitant]
     Active Substance: DEXRAZOXANE
     Route: 042
     Dates: start: 20201114, end: 20201114
  49. DEXRAZOXANE [Concomitant]
     Active Substance: DEXRAZOXANE
     Route: 042
     Dates: start: 20201204, end: 20201204
  50. DEXRAZOXANE [Concomitant]
     Active Substance: DEXRAZOXANE
     Route: 042
     Dates: start: 20201226, end: 20201226
  51. DEXRAZOXANE [Concomitant]
     Active Substance: DEXRAZOXANE
     Route: 042
     Dates: start: 20210115, end: 20210115
  52. DEXRAZOXANE [Concomitant]
     Active Substance: DEXRAZOXANE
     Route: 042
     Dates: start: 20210205, end: 20210205
  53. MESNA [Concomitant]
     Active Substance: MESNA
     Route: 042
     Dates: start: 20201023, end: 20201023
  54. MESNA [Concomitant]
     Active Substance: MESNA
     Route: 042
     Dates: start: 20201114, end: 20201114
  55. MESNA [Concomitant]
     Active Substance: MESNA
     Route: 042
     Dates: start: 20201204, end: 20201204
  56. MESNA [Concomitant]
     Active Substance: MESNA
     Route: 042
     Dates: start: 20201226, end: 20201226
  57. MESNA [Concomitant]
     Active Substance: MESNA
     Route: 042
     Dates: start: 20210115, end: 20210115
  58. MESNA [Concomitant]
     Active Substance: MESNA
     Route: 042
     Dates: start: 20210205, end: 20210205
  59. ACETAMINOPHEN [Concomitant]
     Active Substance: ACETAMINOPHEN
     Route: 048
     Dates: start: 20201022, end: 20201023
  60. ACETAMINOPHEN [Concomitant]
     Active Substance: ACETAMINOPHEN
     Route: 048
     Dates: start: 20201113, end: 20201114
  61. ACETAMINOPHEN [Concomitant]
     Active Substance: ACETAMINOPHEN
     Route: 048
     Dates: start: 20201203, end: 20201204
  62. ACETAMINOPHEN [Concomitant]
     Active Substance: ACETAMINOPHEN
     Route: 048
     Dates: start: 20201225, end: 20201226
  63. ACETAMINOPHEN [Concomitant]
     Active Substance: ACETAMINOPHEN
     Route: 048
     Dates: start: 20210114, end: 20210115
  64. ACETAMINOPHEN [Concomitant]
     Active Substance: ACETAMINOPHEN
     Route: 048
     Dates: start: 20210204, end: 20210205
  65. ACETAMINOPHEN [Concomitant]
     Active Substance: ACETAMINOPHEN
     Route: 048
     Dates: start: 20210225, end: 20210225
  66. ACETAMINOPHEN [Concomitant]
     Active Substance: ACETAMINOPHEN
     Route: 048
     Dates: start: 20210318, end: 20210318
  67. DIPHENHYDRAMINE HYDROCHLORIDE [Concomitant]
     Active Substance: DIPHENHYDRAMINE HYDROCHLORIDE
     Route: 048
     Dates: start: 20201022, end: 20201023
  68. DIPHENHYDRAMINE HYDROCHLORIDE [Concomitant]
     Active Substance: DIPHENHYDRAMINE HYDROCHLORIDE
     Route: 048
     Dates: start: 20201113, end: 20201114
  69. DIPHENHYDRAMINE HYDROCHLORIDE [Concomitant]
     Active Substance: DIPHENHYDRAMINE HYDROCHLORIDE
     Route: 048
     Dates: start: 20201203, end: 20201204
  70. DIPHENHYDRAMINE HYDROCHLORIDE [Concomitant]
     Active Substance: DIPHENHYDRAMINE HYDROCHLORIDE
     Route: 048
     Dates: start: 20201225, end: 20201226
  71. DIPHENHYDRAMINE HYDROCHLORIDE [Concomitant]
     Active Substance: DIPHENHYDRAMINE HYDROCHLORIDE
     Route: 048
     Dates: start: 20210114, end: 20210115
  72. DIPHENHYDRAMINE HYDROCHLORIDE [Concomitant]
     Active Substance: DIPHENHYDRAMINE HYDROCHLORIDE
     Route: 048
     Dates: start: 20210204, end: 20210205
  73. DIPHENHYDRAMINE HYDROCHLORIDE [Concomitant]
     Active Substance: DIPHENHYDRAMINE HYDROCHLORIDE
     Route: 048
     Dates: start: 20210225, end: 20210225
  74. DIPHENHYDRAMINE HYDROCHLORIDE [Concomitant]
     Active Substance: DIPHENHYDRAMINE HYDROCHLORIDE
     Route: 048
     Dates: start: 20210318, end: 20210318
  75. TORSEMIDE [Concomitant]
     Active Substance: TORSEMIDE
     Route: 042
     Dates: start: 20201023, end: 20201023
  76. HERBALS [Concomitant]
     Active Substance: HERBALS
     Indication: Polyuria
     Route: 048
     Dates: start: 2018, end: 20201010
  77. INSULIN NOS [Concomitant]
     Active Substance: INSULIN NOS
     Route: 042
     Dates: start: 20201021, end: 20201025
  78. INSULIN NOS [Concomitant]
     Active Substance: INSULIN NOS
     Route: 042
     Dates: start: 20201114, end: 20201114
  79. INSULIN NOS [Concomitant]
     Active Substance: INSULIN NOS
     Route: 042
     Dates: start: 20201204, end: 20201204
  80. MECAPEGFILGRASTIM [Concomitant]
     Active Substance: MECAPEGFILGRASTIM
     Route: 058
     Dates: start: 20201116, end: 20201116
  81. MECAPEGFILGRASTIM [Concomitant]
     Active Substance: MECAPEGFILGRASTIM
     Route: 058
     Dates: start: 20201026, end: 20201026
  82. MECAPEGFILGRASTIM [Concomitant]
     Active Substance: MECAPEGFILGRASTIM
     Route: 058
     Dates: start: 20210118, end: 20210118
  83. MECAPEGFILGRASTIM [Concomitant]
     Active Substance: MECAPEGFILGRASTIM
     Route: 058
     Dates: start: 20210207, end: 20210207
  84. MECAPEGFILGRASTIM [Concomitant]
     Active Substance: MECAPEGFILGRASTIM
     Route: 058
     Dates: start: 20201207, end: 20201207
  85. MECAPEGFILGRASTIM [Concomitant]
     Active Substance: MECAPEGFILGRASTIM
     Route: 058
     Dates: start: 20201228, end: 20201228
  86. OMEPRAZOLE [Concomitant]
     Active Substance: OMEPRAZOLE
     Route: 042
     Dates: start: 20201225, end: 20201228
  87. OMEPRAZOLE [Concomitant]
     Active Substance: OMEPRAZOLE
     Route: 042
     Dates: start: 20210114, end: 20210118
  88. OMEPRAZOLE [Concomitant]
     Active Substance: OMEPRAZOLE
     Route: 042
     Dates: start: 20210204, end: 20210207
  89. METHOTREXATE [Concomitant]
     Active Substance: METHOTREXATE
     Route: 037
     Dates: start: 20210118, end: 20210118
  90. METHOTREXATE [Concomitant]
     Active Substance: METHOTREXATE
     Route: 037
     Dates: start: 20210207, end: 20210207
  91. METHOTREXATE [Concomitant]
     Active Substance: METHOTREXATE
     Route: 037
     Dates: start: 20210319, end: 20210319
  92. DEXAMETHASONE [Concomitant]
     Active Substance: DEXAMETHASONE
     Route: 037
     Dates: start: 20210118, end: 20210118
  93. DEXAMETHASONE [Concomitant]
     Active Substance: DEXAMETHASONE
     Route: 037
     Dates: start: 20210207, end: 20210207
  94. DEXAMETHASONE [Concomitant]
     Active Substance: DEXAMETHASONE
     Route: 037
     Dates: start: 20210319, end: 20210319
  95. METHYLCOBALAMIN [Concomitant]
     Active Substance: METHYLCOBALAMIN
     Route: 048
     Dates: start: 20210116

REACTIONS (1)
  - Pathological fracture [Recovered/Resolved]

NARRATIVE: CASE EVENT DATE: 20201025
